FAERS Safety Report 7265542-2 (Version None)
Quarter: 2011Q1

REPORT INFORMATION
  Report Type: 
  Country: None (occurrence: None)
  Receive Date: 20110131
  Receipt Date: 20110124
  Transmission Date: 20110831
  Serious: Yes (Hospitalization)
  Sender: FDA-Public Use
  Company Number: B0695655A

PATIENT
  Sex: Male

DRUGS (2)
  1. ORLISTAT [Suspect]
  2. LIRAGLUTIDE [Suspect]

REACTIONS (1)
  - VOMITING [None]
